FAERS Safety Report 9320879 (Version 2)
Quarter: 2013Q2

REPORT INFORMATION
  Report Type: Spontaneous
  Country: GB (occurrence: None)
  Receive Date: 20130528
  Receipt Date: 20130531
  Transmission Date: 20140414
  Serious: Yes (Other)
  Sender: FDA-Public Use
  Company Number: AUR-APL-2013-04219

PATIENT
  Age: 57 Year
  Sex: Male
  Weight: 45 kg

DRUGS (3)
  1. MIRTAZAPINE (MIRTAZAPINE) [Suspect]
     Indication: ANXIETY
     Dosage: 15 MG, 1 IN 1 D, ORAL
     Route: 048
     Dates: start: 20121128, end: 20130128
  2. LANSOPRAZOLE (LANSOPRAZOLE) [Suspect]
     Indication: PROPHYLAXIS
     Dosage: 30 MG 1 IN 1 D, ORAL
     Route: 048
     Dates: start: 20121107, end: 20130128
  3. DEXAMETHASONE [Concomitant]

REACTIONS (5)
  - Malaise [None]
  - White blood cell count decreased [None]
  - Neutropenia [None]
  - Hepatic function abnormal [None]
  - Off label use [None]
